FAERS Safety Report 17253865 (Version 2)
Quarter: 2020Q1

REPORT INFORMATION
  Report Type: Spontaneous
  Country: NL (occurrence: NL)
  Receive Date: 20200109
  Receipt Date: 20200213
  Transmission Date: 20200409
  Serious: Yes (Death, Other)
  Sender: FDA-Public Use
  Company Number: NL-MYLANLABS-2020M1003439

PATIENT
  Sex: Female
  Weight: .78 kg

DRUGS (6)
  1. NIFEDIPINE. [Suspect]
     Active Substance: NIFEDIPINE
     Dosage: 20 MG Q3H
     Route: 064
  2. NIFEDIPINE. [Suspect]
     Active Substance: NIFEDIPINE
     Indication: TOCOLYSIS
     Dosage: 20 MILLIGRAM
     Route: 064
  3. NIFEDIPINE. [Suspect]
     Active Substance: NIFEDIPINE
     Dosage: MATERNAL DOSE: 20 MG Q3H
     Route: 064
  4. ATOSIBAN [Suspect]
     Active Substance: ATOSIBAN
     Indication: PRODUCT USED FOR UNKNOWN INDICATION
     Dosage: MATERNAL DOSE: UNK
     Route: 064
  5. NIFEDIPINE. [Suspect]
     Active Substance: NIFEDIPINE
     Dosage: MATERNAL DOSE: 20 MG
     Route: 064
  6. INDOMETHACIN                       /00003801/ [Suspect]
     Active Substance: INDOMETHACIN
     Indication: PRODUCT USED FOR UNKNOWN INDICATION
     Dosage: MATERNAL DOSE: UNK
     Route: 064

REACTIONS (2)
  - Bradycardia foetal [Fatal]
  - Foetal exposure during pregnancy [Fatal]
